FAERS Safety Report 10062044 (Version 3)
Quarter: 2014Q2

REPORT INFORMATION
  Report Type: Report from Study
  Country: FR (occurrence: FR)
  Receive Date: 20140407
  Receipt Date: 20140416
  Transmission Date: 20141212
  Serious: Yes (Hospitalization)
  Sender: FDA-Public Use
  Company Number: FR-JNJFOC-20140319293

PATIENT
  Age: 10 Year
  Sex: Female
  Weight: 21.5 kg

DRUGS (4)
  1. REMICADE [Suspect]
     Indication: CROHN^S DISEASE
     Route: 042
     Dates: start: 20110902
  2. REMICADE [Suspect]
     Indication: CROHN^S DISEASE
     Route: 042
     Dates: start: 201401
  3. HUMIRA [Concomitant]
     Route: 065
     Dates: start: 20130404, end: 20131220
  4. METHOTREXATE [Concomitant]
     Route: 065
     Dates: end: 201401

REACTIONS (1)
  - Crohn^s disease [Recovered/Resolved]
